FAERS Safety Report 24800521 (Version 2)
Quarter: 2025Q1

REPORT INFORMATION
  Report Type: Spontaneous
  Country: US (occurrence: US)
  Receive Date: 20250102
  Receipt Date: 20250205
  Transmission Date: 20250408
  Serious: Yes (Disabling, Other)
  Sender: OTSUKA
  Company Number: US-OTSUKA-2024_035016

PATIENT
  Age: 53 Year
  Sex: Female

DRUGS (17)
  1. REXULTI [Suspect]
     Active Substance: BREXPIPRAZOLE
     Indication: Major depression
     Dosage: 3 MG, QD
     Route: 048
     Dates: start: 20241003, end: 20241118
  2. REXULTI [Suspect]
     Active Substance: BREXPIPRAZOLE
     Indication: Generalised anxiety disorder
     Dosage: 0.5 MG, QD
     Route: 048
     Dates: start: 20241016
  3. REXULTI [Suspect]
     Active Substance: BREXPIPRAZOLE
     Route: 065
  4. VENTOLIN HFA [Concomitant]
     Active Substance: ALBUTEROL SULFATE
     Indication: Product used for unknown indication
     Dosage: 2 DF, Q4HR (INHALE)
     Route: 055
     Dates: start: 20241003, end: 20241205
  5. CYMBALTA [Concomitant]
     Active Substance: DULOXETINE HYDROCHLORIDE
     Indication: Major depression
     Dosage: UNK UNK, BID (2 PILLS IN THE MORNING AND 1 PILL AT NIGHT)
     Route: 065
     Dates: start: 20240912, end: 20241205
  6. CYMBALTA [Concomitant]
     Active Substance: DULOXETINE HYDROCHLORIDE
     Indication: Generalised anxiety disorder
  7. EPIPEN [Concomitant]
     Active Substance: EPINEPHRINE
     Indication: Product used for unknown indication
     Route: 058
     Dates: start: 20180430
  8. PERCOCET [Concomitant]
     Active Substance: ACETAMINOPHEN\OXYCODONE HYDROCHLORIDE
     Indication: Product used for unknown indication
     Route: 065
     Dates: start: 20240715, end: 20241018
  9. LYRICA [Concomitant]
     Active Substance: PREGABALIN
     Indication: Neuropathy peripheral
     Route: 065
     Dates: start: 20240816
  10. REQUIP [Concomitant]
     Active Substance: ROPINIROLE HYDROCHLORIDE
     Indication: Product used for unknown indication
     Dosage: 3 MG, QD (AT BEDTIME)
     Route: 048
     Dates: start: 20240912, end: 20241205
  11. CHANTIX [Concomitant]
     Active Substance: VARENICLINE TARTRATE
     Indication: Prophylaxis
     Dosage: 1 MG, BID
     Route: 048
     Dates: start: 20240912, end: 20241126
  12. ZYRTEC [Concomitant]
     Active Substance: CETIRIZINE HYDROCHLORIDE
     Indication: Product used for unknown indication
     Dosage: 10 MG, QD
     Route: 048
  13. MINERALS\VITAMINS [Concomitant]
     Active Substance: MINERALS\VITAMINS
     Indication: Product used for unknown indication
     Route: 065
  14. OXYMETAZOLINE HYDROCHLORIDE [Concomitant]
     Active Substance: OXYMETAZOLINE HYDROCHLORIDE
     Indication: Product used for unknown indication
     Route: 065
  15. CALCIUM CARBONATE\VITAMIN D [Concomitant]
     Active Substance: CALCIUM CARBONATE\VITAMIN D
     Indication: Product used for unknown indication
     Route: 065
  16. DIETARY SUPPLEMENT\HERBALS\MILK THISTLE [Concomitant]
     Active Substance: MILK THISTLE
     Indication: Product used for unknown indication
     Route: 065
  17. INFLUENZA VIRUS VACCINE [Concomitant]
     Active Substance: INFLUENZA VIRUS VACCINE
     Indication: Prophylaxis
     Route: 065

REACTIONS (7)
  - Human papilloma virus test positive [Unknown]
  - Movement disorder [Not Recovered/Not Resolved]
  - Glycosylated haemoglobin abnormal [Unknown]
  - Metabolic function test abnormal [Unknown]
  - Lipids abnormal [Unknown]
  - Blood alkaline phosphatase increased [Unknown]
  - Product use in unapproved indication [Unknown]

NARRATIVE: CASE EVENT DATE: 20241003
